FAERS Safety Report 24792020 (Version 3)
Quarter: 2025Q3

REPORT INFORMATION
  Report Type: Spontaneous
  Country: US (occurrence: US)
  Receive Date: 20241231
  Receipt Date: 20250710
  Transmission Date: 20251020
  Serious: No
  Sender: SANOFI AVENTIS
  Company Number: US-SA-2024SA384313

PATIENT
  Age: 63 Year
  Sex: Female

DRUGS (2)
  1. DUPIXENT [Suspect]
     Active Substance: DUPILUMAB
     Indication: Dermatitis atopic
     Route: 058
  2. DUPIXENT [Suspect]
     Active Substance: DUPILUMAB
     Dosage: 300 MG, QOW
     Route: 058

REACTIONS (11)
  - Productive cough [Unknown]
  - Gastrooesophageal reflux disease [Unknown]
  - Dry skin [Unknown]
  - Skin haemorrhage [Unknown]
  - Nasopharyngitis [Unknown]
  - Throat irritation [Unknown]
  - Cough [Unknown]
  - Productive cough [Unknown]
  - Rhinorrhoea [Unknown]
  - Pruritus [Unknown]
  - Rash [Unknown]

NARRATIVE: CASE EVENT DATE: 20250207
